FAERS Safety Report 4435086-1 (Version None)
Quarter: 2004Q3

REPORT INFORMATION
  Report Type: 
  Country: None (occurrence: None)
  Receive Date: 20040826
  Receipt Date: 20040826
  Transmission Date: 20050211
  Serious: Yes (Other)
  Sender: FDA-Public Use
  Company Number: None

PATIENT
  Sex: Male
  Weight: 61.2356 kg

DRUGS (1)
  1. DEPAKOTE [Suspect]
     Indication: EPILEPSY
     Dosage: CURRENTLY 500 MG DAILY AT BEDTIME

REACTIONS (8)
  - ABNORMAL BEHAVIOUR [None]
  - AGGRESSION [None]
  - APATHY [None]
  - DEPRESSION [None]
  - EDUCATIONAL PROBLEM [None]
  - EMOTIONAL DISTRESS [None]
  - HOSTILITY [None]
  - PSYCHOMOTOR HYPERACTIVITY [None]
